FAERS Safety Report 15173337 (Version 2)
Quarter: 2018Q3

REPORT INFORMATION
  Report Type: Spontaneous
  Country: JP (occurrence: JP)
  Receive Date: 20180720
  Receipt Date: 20180730
  Transmission Date: 20181010
  Serious: Yes (Other)
  Sender: FDA-Public Use
  Company Number: JP-BAYER-2018-131922

PATIENT
  Sex: Female
  Weight: 1.67 kg

DRUGS (10)
  1. SAIREI?TO [Concomitant]
     Active Substance: UNSPECIFIED INGREDIENT
     Route: 064
  2. GAMMA GLOBULIN [IMMUNOGLOBULIN] [Concomitant]
     Route: 064
  3. AMPICILLIN [Concomitant]
     Active Substance: AMPICILLIN
     Indication: INFECTION PROPHYLAXIS
     Route: 064
  4. BETAMETHASONE. [Concomitant]
     Active Substance: BETAMETHASONE
     Dosage: DAILY DOSE 12 MG
     Route: 064
  5. MAGNESIUM SULFATE. [Concomitant]
     Active Substance: MAGNESIUM SULFATE
     Route: 064
  6. HEPARIN SODIUM. [Concomitant]
     Active Substance: HEPARIN SODIUM
     Route: 064
  7. PROGESTERONE. [Concomitant]
     Active Substance: PROGESTERONE
     Route: 064
  8. CEFAZOLIN SODIUM. [Concomitant]
     Active Substance: CEFAZOLIN SODIUM
     Indication: INFECTION PROPHYLAXIS
     Route: 064
  9. BAYASPIRIN 100 MG [Suspect]
     Active Substance: ASPIRIN
     Route: 064
  10. RITODRINE HYDROCHLORIDE [Concomitant]
     Active Substance: RITODRINE HYDROCHLORIDE
     Indication: INFECTION PROPHYLAXIS
     Dosage: UNK
     Route: 064

REACTIONS (4)
  - Foetal growth restriction [None]
  - Pulmonary hypoplasia [None]
  - Foetal exposure during pregnancy [None]
  - Premature baby [None]
